FAERS Safety Report 4554983-X (Version None)
Quarter: 2004Q4

REPORT INFORMATION
  Report Type: 
  Country: None (occurrence: None)
  Receive Date: 20041222
  Receipt Date: 20041116
  Transmission Date: 20050328
  Serious: Yes (Hospitalization)
  Sender: FDA-Public Use
  Company Number: 210454

PATIENT
  Age: 62 Year
  Sex: Male

DRUGS (4)
  1. AVASTIN [Suspect]
     Indication: LUNG NEOPLASM MALIGNANT
     Dosage: 400 MG, Q2W, INTRAVENOUS
     Route: 042
     Dates: start: 20040608, end: 20040810
  2. GEMZAR [Concomitant]
  3. COMPAZINE [Concomitant]
  4. ZOFRAN [Concomitant]

REACTIONS (3)
  - ASTHENIA [None]
  - DYSPNOEA EXACERBATED [None]
  - TACHYCARDIA [None]
